FAERS Safety Report 8214893-3 (Version None)
Quarter: 2012Q1

REPORT INFORMATION
  Report Type: 
  Country: None (occurrence: None)
  Receive Date: 20120316
  Receipt Date: 20120307
  Transmission Date: 20120608
  Serious: Yes (Other)
  Sender: FDA-Public Use
  Company Number: GB-JNJFOC-20111205319

PATIENT
  Age: 70 Year
  Sex: Male

DRUGS (2)
  1. XARELTO [Suspect]
     Indication: KNEE ARTHROPLASTY
     Route: 048
  2. HEPARIN [Concomitant]

REACTIONS (1)
  - HALLUCINATION [None]
